FAERS Safety Report 9302081 (Version 2)
Quarter: 2013Q2

REPORT INFORMATION
  Report Type: Spontaneous
  Country: US (occurrence: US)
  Receive Date: 20130521
  Receipt Date: 20130628
  Transmission Date: 20140414
  Serious: Yes (Hospitalization)
  Sender: FDA-Public Use
  Company Number: US-B.I. PHARMACEUTICALS,INC./RIDGEFIELD-2013-BI-13958BP

PATIENT
  Age: 79 Year
  Sex: Male
  Weight: 61.23 kg

DRUGS (9)
  1. PRADAXA [Suspect]
     Indication: ANTICOAGULANT THERAPY
     Route: 048
     Dates: start: 20110209, end: 20120715
  2. PRADAXA [Suspect]
     Indication: ATRIAL FIBRILLATION
  3. CARVEDILOL [Concomitant]
     Dates: start: 200804, end: 2012
  4. ALLOPURINOL [Concomitant]
     Dates: start: 200807, end: 2012
  5. PLAVIX [Concomitant]
     Dates: start: 200804, end: 2012
  6. BENZONATATE [Concomitant]
  7. FEXOFENADINE [Concomitant]
  8. NASONEX [Concomitant]
  9. NIASPAN [Concomitant]

REACTIONS (2)
  - Gastritis haemorrhagic [Unknown]
  - Haemorrhagic anaemia [Unknown]
